FAERS Safety Report 8764663 (Version 1)
Quarter: 2012Q4

REPORT INFORMATION
  Report Type: 
  Country: US (occurrence: US)
  Receive Date: 20120831
  Receipt Date: 20120831
  Transmission Date: 20130627
  Serious: Yes (Other)
  Sender: FDA-Public Use
  Company Number: US-MYLANLABS-2012S1017932

PATIENT
  Age: 80 Year
  Sex: Male
  Weight: 73 kg

DRUGS (7)
  1. AMLODIPINE BESILATE TABLETS [Suspect]
     Indication: BLOOD PRESSURE INCREASED
     Dates: end: 201205
  2. MEMANTINE [Suspect]
     Indication: FAHR^S DISEASE
     Route: 048
     Dates: start: 201108
  3. CLONAZEPAM [Suspect]
     Indication: RAPID EYE MOVEMENTS SLEEP ABNORMAL
     Dosage: 1/2 tab daily
     Dates: start: 201108, end: 20120820
  4. GALANTAMINE [Concomitant]
     Indication: FAHR^S DISEASE
  5. ASPIRIN [Concomitant]
     Indication: BLOOD PRESSURE INCREASED
  6. ATENOLOL [Concomitant]
     Indication: BLOOD PRESSURE INCREASED
  7. PLAVIX [Concomitant]
     Indication: BLOOD PRESSURE INCREASED

REACTIONS (11)
  - Cognitive disorder [Not Recovered/Not Resolved]
  - Amnesia [Not Recovered/Not Resolved]
  - Dizziness [Recovering/Resolving]
  - Confusional state [Recovering/Resolving]
  - Thinking abnormal [Recovering/Resolving]
  - Lethargy [Recovering/Resolving]
  - Malaise [Recovering/Resolving]
  - Tremor [Not Recovered/Not Resolved]
  - Weight decreased [Not Recovered/Not Resolved]
  - Blood pressure increased [Recovered/Resolved]
  - Off label use [Not Recovered/Not Resolved]
